FAERS Safety Report 8337749-4 (Version None)
Quarter: 2012Q2

REPORT INFORMATION
  Report Type: 
  Country: None (occurrence: None)
  Receive Date: 20120504
  Receipt Date: 20120427
  Transmission Date: 20120825
  Serious: Yes (Hospitalization)
  Sender: FDA-Public Use
  Company Number: US-ALEXION PHARMACEUTICALS INC.-A201200800

PATIENT
  Sex: Female

DRUGS (9)
  1. MYCOPHENOLATE MOFETIL (CELLCEPT) [Concomitant]
     Dosage: UNK
  2. SODIUM BICARBONATE [Concomitant]
     Dosage: UNK
  3. IRON [Concomitant]
     Dosage: UNK
  4. SOLIRIS [Suspect]
     Indication: HAEMOLYTIC URAEMIC SYNDROME
     Dosage: 1200 MG, QW
     Route: 042
     Dates: start: 20111201
  5. SOLIRIS [Suspect]
     Dosage: 1200 MG, Q2W
     Route: 042
     Dates: start: 20120101
  6. PROGRAF [Concomitant]
     Dosage: UNK
  7. PREDNISONE TAB [Concomitant]
     Dosage: UNK
  8. CALCITRIOL [Concomitant]
     Dosage: UNK
  9. PROTONIX [Concomitant]
     Dosage: UNK

REACTIONS (2)
  - BLOOD CREATININE INCREASED [None]
  - GASTROINTESTINAL VIRAL INFECTION [None]
